FAERS Safety Report 23889336 (Version 1)
Quarter: 2024Q2

REPORT INFORMATION
  Report Type: Spontaneous
  Country: US (occurrence: None)
  Receive Date: 20240523
  Receipt Date: 20240523
  Transmission Date: 20240716
  Serious: Yes (Disabling, Other)
  Sender: FDA-Public Use
  Company Number: None

PATIENT
  Age: 20 Year
  Sex: Male
  Weight: 132.3 kg

DRUGS (3)
  1. ASENAPINE [Suspect]
     Active Substance: ASENAPINE
     Indication: Behaviour disorder
     Dosage: FREQUENCY : AT BEDTIME;?
     Route: 060
     Dates: start: 20170801, end: 20240424
  2. METHYLCOBALAMIN [Concomitant]
     Active Substance: METHYLCOBALAMIN
  3. VITAMIN D3 [Concomitant]
     Active Substance: CHOLECALCIFEROL

REACTIONS (6)
  - Depression [None]
  - Weight increased [None]
  - Restlessness [None]
  - Agitation [None]
  - Affective disorder [None]
  - Hypersomnia [None]

NARRATIVE: CASE EVENT DATE: 20170901
